FAERS Safety Report 6533982-2 (Version None)
Quarter: 2010Q1

REPORT INFORMATION
  Report Type: 
  Country: None (occurrence: None)
  Receive Date: 20100112
  Receipt Date: 20100105
  Transmission Date: 20100710
  Serious: Yes (Other)
  Sender: FDA-Public Use
  Company Number: NL-ROCHE-665500

PATIENT
  Age: 82 Year
  Sex: Female

DRUGS (9)
  1. TAMIFLU [Suspect]
     Indication: PROPHYLAXIS
     Route: 048
     Dates: end: 20060101
  2. SINTROM [Suspect]
     Indication: ATRIAL FIBRILLATION
     Route: 048
     Dates: end: 20060101
  3. SPIRONOLACTONUM [Concomitant]
     Route: 048
  4. FUROSEMIDE [Concomitant]
     Route: 048
  5. FLAMMAZINE [Concomitant]
     Dosage: DOSE: 10 MG/G
     Route: 061
  6. LANOXIN [Concomitant]
     Route: 048
  7. FOLIC ACID [Concomitant]
     Route: 048
  8. SINEMET [Concomitant]
     Route: 048
  9. SOL LACTULOSI [Concomitant]
     Dosage: DOSE: 500 MG/G, DRUG: SIRUPUS LACTULOSI

REACTIONS (1)
  - INTERNATIONAL NORMALISED RATIO INCREASED [None]
